FAERS Safety Report 20180195 (Version 1)
Quarter: 2021Q4

REPORT INFORMATION
  Report Type: Spontaneous
  Country: IT (occurrence: IT)
  Receive Date: 20211214
  Receipt Date: 20211214
  Transmission Date: 20220303
  Serious: Yes (Other)
  Sender: FDA-Public Use
  Company Number: None

PATIENT
  Age: 74 Year
  Sex: Male

DRUGS (5)
  1. DAPTOMYCIN [Suspect]
     Active Substance: DAPTOMYCIN
     Indication: Intervertebral discitis
     Dosage: 700 MILLIGRAM, QD; POWDER FOR SOLUTION FOR INJECTION
     Route: 042
     Dates: start: 20211021, end: 20211112
  2. RIFAMPIN [Concomitant]
     Active Substance: RIFAMPIN
     Indication: Intervertebral discitis
     Dosage: 600 MILLIGRAM
     Route: 048
     Dates: start: 20211029, end: 20211112
  3. OXACILLIN [Concomitant]
     Active Substance: OXACILLIN SODIUM
     Indication: Intervertebral discitis
     Dosage: 12 GRAM, QD
     Route: 042
     Dates: start: 20211029, end: 20211112
  4. PIPERACILLIN SODIUM\TAZOBACTAM SODIUM [Concomitant]
     Active Substance: PIPERACILLIN SODIUM\TAZOBACTAM SODIUM
     Indication: Intervertebral discitis
     Dosage: 16 GRAM, QD
     Route: 042
     Dates: start: 20211021, end: 20211025
  5. FOSFOMYCIN [Concomitant]
     Active Substance: FOSFOMYCIN
     Indication: Intervertebral discitis
     Dosage: 16 GRAM, QD
     Dates: start: 20211025, end: 20211029

REACTIONS (2)
  - Eosinophilic pneumonia [Recovering/Resolving]
  - Pneumonia [Recovering/Resolving]

NARRATIVE: CASE EVENT DATE: 20211115
